FAERS Safety Report 9536359 (Version 1)
Quarter: 2013Q2

REPORT INFORMATION
  Report Type: Spontaneous
  Country: US (occurrence: None)
  Receive Date: 20130507
  Receipt Date: 20130507
  Transmission Date: 20140414
  Serious: Yes (Hospitalization)
  Sender: FDA-Public Use
  Company Number: PHEH2012US023706

PATIENT
  Age: 28 Year
  Sex: Female

DRUGS (4)
  1. AFINITOR (RAD) [Suspect]
     Indication: TUBEROUS SCLEROSIS
     Route: 048
     Dates: start: 20120328
  2. CARBATROL (CARBAMAZEPINE) [Concomitant]
  3. VIMPAT (LACOSAMIDE) [Concomitant]
  4. LISINOPRIL (LISINOPRIL) [Concomitant]

REACTIONS (7)
  - Urinary tract infection [None]
  - Bacteraemia [None]
  - Incontinence [None]
  - Headache [None]
  - Abdominal pain upper [None]
  - Vomiting [None]
  - Pyrexia [None]
